FAERS Safety Report 5283623-X (Version None)
Quarter: 2007Q1

REPORT INFORMATION
  Report Type: 
  Country: None (occurrence: None)
  Receive Date: 20070329
  Receipt Date: 20070329
  Transmission Date: 20070707
  Serious: Yes (Disabling)
  Sender: FDA-Public Use
  Company Number: None

PATIENT
  Age: 47 Year
  Sex: Male

DRUGS (6)
  1. ENALAPRIL MALEATE [Suspect]
     Indication: HYPERTENSION
     Dosage: 20MG BID PO
     Route: 048
     Dates: start: 20030301, end: 20061230
  2. LANOXIN [Concomitant]
  3. HYDRALAZINE HCL [Concomitant]
  4. HYDROCHLOROTHIAZIDE [Concomitant]
  5. ISOSORBIDE DINITRATE [Concomitant]
  6. METOPROLOL TARTRATE [Concomitant]

REACTIONS (1)
  - ANGIOEDEMA [None]
